FAERS Safety Report 16410210 (Version 1)
Quarter: 2019Q3

REPORT INFORMATION
  Report Type: Spontaneous
  Country: US (occurrence: US)
  Receive Date: 20190607
  Receipt Date: 20190607
  Transmission Date: 20191004
  Serious: No
  Sender: FDA-Public Use
  Company Number: None

PATIENT

DRUGS (1)
  1. CARVEDILOL 25MG [Suspect]
     Active Substance: CARVEDILOL

REACTIONS (3)
  - Dyspnoea [None]
  - Asthma [None]
  - Palpitations [None]
